FAERS Safety Report 10110508 (Version 2)
Quarter: 2014Q2

REPORT INFORMATION
  Report Type: Report from Study
  Country: BR (occurrence: BR)
  Receive Date: 20140425
  Receipt Date: 20140624
  Transmission Date: 20141212
  Serious: Yes (Hospitalization)
  Sender: FDA-Public Use
  Company Number: BR-SHIRE-BR201401515

PATIENT
  Age: 5 Year
  Sex: Male

DRUGS (3)
  1. IDURSULFASE [Suspect]
     Indication: MUCOPOLYSACCHARIDOSIS II
     Dosage: 0.56 MG/KG, 1X/WEEK
     Route: 041
     Dates: start: 20120727
  2. IDURSULFASE [Suspect]
     Dosage: UNK, UNKNOWN
     Route: 041
     Dates: start: 20091207
  3. IDURSULFASE [Suspect]
     Dosage: 0.5 MG/KG, 1X/WEEK
     Route: 041
     Dates: start: 20110426

REACTIONS (1)
  - Respiratory disorder [Recovered/Resolved]
